FAERS Safety Report 21966476 (Version 1)
Quarter: 2023Q1

REPORT INFORMATION
  Report Type: Spontaneous
  Country: NL (occurrence: NL)
  Receive Date: 20230208
  Receipt Date: 20230208
  Transmission Date: 20230417
  Serious: Yes (Life-Threatening, Other)
  Sender: FDA-Public Use
  Company Number: NL-LRB-00863651

PATIENT
  Sex: Male
  Weight: 91 kg

DRUGS (4)
  1. AMOXICILLIN [Suspect]
     Active Substance: AMOXICILLIN
     Indication: Respiratory tract infection
     Dosage: 1 DOSAGE FORM (3 X PER DAG)
     Route: 065
     Dates: start: 20230105
  2. CARBASPIRIN [Suspect]
     Active Substance: CARBASPIRIN
     Indication: Anticoagulant therapy
     Dosage: 1 DOSAGE FORM, EVERY HOUR (1 X DAG)
     Route: 065
     Dates: start: 20210305
  3. DIPYRIDAMOLE [Suspect]
     Active Substance: DIPYRIDAMOLE
     Indication: Anticoagulant therapy
     Dosage: 1 DOSAGE FORM, TWO TIMES A DAY ((2 X DAG))
     Route: 065
     Dates: start: 20210302
  4. PREDNISOLONE [Suspect]
     Active Substance: PREDNISOLONE
     Indication: Respiratory tract infection
     Dosage: 1 DOSAGE FORM, TWO TIMES A DAY (2 XDAG)
     Route: 065
     Dates: start: 20230105

REACTIONS (3)
  - Transient ischaemic attack [Recovered/Resolved]
  - Hemiparesis [Recovered/Resolved]
  - Dizziness [Recovered/Resolved]
